FAERS Safety Report 9845276 (Version 1)
Quarter: 2014Q1

REPORT INFORMATION
  Report Type: Spontaneous
  Country: US (occurrence: None)
  Receive Date: 20140122
  Receipt Date: 20140122
  Transmission Date: 20141002
  Serious: Yes (Other)
  Sender: FDA-Public Use
  Company Number: ADR-2014-00072

PATIENT
  Age: 44 Year
  Sex: Male

DRUGS (1)
  1. LIORESAL [Suspect]
     Indication: MUSCLE SPASTICITY
     Dosage: 600MCG/DAY, INTRATHECAL
     Route: 037

REACTIONS (5)
  - Drug withdrawal syndrome [None]
  - Muscle spasticity [None]
  - Wrong drug administered [None]
  - Device dislocation [None]
  - Device alarm issue [None]
